FAERS Safety Report 24567844 (Version 4)
Quarter: 2024Q4

REPORT INFORMATION
  Report Type: Spontaneous
  Country: US (occurrence: US)
  Receive Date: 20241031
  Receipt Date: 20241218
  Transmission Date: 20250114
  Serious: Yes (Other)
  Sender: REGENERON
  Company Number: US-REGENERON PHARMACEUTICALS, INC.-2024-145593

PATIENT
  Sex: Male

DRUGS (14)
  1. EYLEA HD [Suspect]
     Active Substance: AFLIBERCEPT
     Indication: Diabetic retinal oedema
     Dosage: 8 MG EVERY 5 WEEKS; BOTH EYES; STRENGTH: 114.3 MG/ML (FORMULATION: HD VIAL)
     Dates: start: 20240618, end: 20240618
  2. EYLEA HD [Suspect]
     Active Substance: AFLIBERCEPT
     Indication: Diabetic retinopathy
     Dosage: 8 MG  INTO LEFT EYE; STRENGTH: 8 MG/0.07 ML; FORMULATION: HD VIAL
     Dates: start: 20241112
  3. EYLEA HD [Suspect]
     Active Substance: AFLIBERCEPT
     Dosage: 8 MG,  INTO RIGHT EYE; STRENGTH: 8 MG/0.07 ML; FORMULATION: HD VIAL
     Dates: start: 20241112
  4. FARXIGA [Concomitant]
     Active Substance: DAPAGLIFLOZIN PROPANEDIOL
     Indication: Product used for unknown indication
  5. BASAGLAR [Concomitant]
     Active Substance: INSULIN GLARGINE
     Indication: Product used for unknown indication
  6. METOPROLOL TARTRATE [Concomitant]
     Active Substance: METOPROLOL TARTRATE
     Indication: Product used for unknown indication
  7. FUROSEMIDE [Concomitant]
     Active Substance: FUROSEMIDE
     Indication: Product used for unknown indication
  8. ATORVASTATIN ACTAVIS [ATORVASTATIN CALCIUM] [Concomitant]
     Indication: Product used for unknown indication
     Dosage: 40 MG,QD
     Route: 048
  9. METFORMIN HYDROCHLORIDE [Concomitant]
     Active Substance: METFORMIN HYDROCHLORIDE
     Indication: Product used for unknown indication
  10. SILDENAFIL [Concomitant]
     Active Substance: SILDENAFIL
     Indication: Product used for unknown indication
  11. VITAMINS NOS [Concomitant]
     Active Substance: VITAMINS
     Indication: Product used for unknown indication
  12. LISINOPRIL [Concomitant]
     Active Substance: LISINOPRIL
     Indication: Product used for unknown indication
  13. SPIRONOLACTONE [Concomitant]
     Active Substance: SPIRONOLACTONE
     Indication: Product used for unknown indication
  14. FLONASE [Concomitant]
     Active Substance: FLUTICASONE PROPIONATE
     Indication: Product used for unknown indication

REACTIONS (11)
  - Blindness transient [Recovering/Resolving]
  - Diabetic retinal oedema [Recovering/Resolving]
  - Diabetic retinopathy [Recovering/Resolving]
  - Condition aggravated [Recovering/Resolving]
  - Endophthalmitis [Recovered/Resolved]
  - Punctate keratitis [Unknown]
  - Iris transillumination defect [Unknown]
  - Visual impairment [Unknown]
  - Vision blurred [Unknown]
  - Vitreous floaters [Unknown]
  - Product dose omission issue [Recovered/Resolved]

NARRATIVE: CASE EVENT DATE: 20240101
